FAERS Safety Report 18485047 (Version 2)
Quarter: 2020Q4

REPORT INFORMATION
  Report Type: Spontaneous
  Country: US (occurrence: US)
  Receive Date: 20201110
  Receipt Date: 20201124
  Transmission Date: 20210114
  Serious: No
  Sender: FDA-Public Use
  Company Number: US-CELGENEUS-USA-20201101043

PATIENT
  Age: 61 Year
  Sex: Female

DRUGS (5)
  1. ZEPOSIA [Suspect]
     Active Substance: OZANIMOD HYDROCHLORIDE
     Dosage: 0.92 MILLIGRAM
     Route: 048
     Dates: start: 20201029
  2. ZEPOSIA [Suspect]
     Active Substance: OZANIMOD HYDROCHLORIDE
     Dosage: FOR 2 WEEKS
     Route: 048
     Dates: start: 20201012, end: 20201028
  3. ZEPOSIA [Suspect]
     Active Substance: OZANIMOD HYDROCHLORIDE
     Indication: MULTIPLE SCLEROSIS
     Dosage: 0.92 MILLIGRAM; DAILY
     Route: 048
     Dates: start: 20201001
  4. ZEPOSIA [Suspect]
     Active Substance: OZANIMOD HYDROCHLORIDE
     Dosage: 0.92 MILLIGRAM
     Route: 048
     Dates: start: 20201107
  5. ZEPOSIA [Suspect]
     Active Substance: OZANIMOD HYDROCHLORIDE
     Dosage: 0.92 MILLIGRAM; DAILY
     Route: 048

REACTIONS (6)
  - Dizziness [Recovering/Resolving]
  - Feeling abnormal [Recovered/Resolved]
  - Peripheral swelling [Recovered/Resolved]
  - Pain in extremity [Recovered/Resolved]
  - Vision blurred [Recovering/Resolving]
  - Adverse drug reaction [Unknown]

NARRATIVE: CASE EVENT DATE: 20201001
